FAERS Safety Report 9372883 (Version 2)
Quarter: 2013Q3

REPORT INFORMATION
  Report Type: Spontaneous
  Country: FR (occurrence: FR)
  Receive Date: 20130627
  Receipt Date: 20130711
  Transmission Date: 20140515
  Serious: Yes (Hospitalization)
  Sender: FDA-Public Use
  Company Number: FR-PFIZER INC-2013186793

PATIENT
  Age: 49 Year
  Sex: Male

DRUGS (5)
  1. TAHOR [Suspect]
     Indication: HYPERCHOLESTEROLAEMIA
     Dosage: 20 MG, DAILY
     Route: 048
     Dates: start: 20110208, end: 20121020
  2. TAHOR [Suspect]
     Dosage: 10 MG, DAILY
     Route: 048
     Dates: start: 20121020, end: 20130309
  3. TAHOR [Suspect]
     Dosage: 10 MG, DAILY
     Route: 048
     Dates: start: 20130527, end: 20130606
  4. DAFALGAN [Concomitant]
  5. STILNOX [Concomitant]

REACTIONS (6)
  - Night sweats [Not Recovered/Not Resolved]
  - Palpitations [Not Recovered/Not Resolved]
  - Tremor [Not Recovered/Not Resolved]
  - Abdominal distension [Recovered/Resolved]
  - Blood pressure increased [Recovered/Resolved]
  - Panic attack [Unknown]
